FAERS Safety Report 4388688-5 (Version None)
Quarter: 2004Q2

REPORT INFORMATION
  Report Type: 
  Country: None (occurrence: None)
  Receive Date: 20040624
  Receipt Date: 20040610
  Transmission Date: 20050107
  Serious: Yes (Hospitalization)
  Sender: FDA-Public Use
  Company Number: DSA_24329_2004

PATIENT
  Age: 68 Year
  Sex: Female

DRUGS (4)
  1. TEVETEN [Suspect]
     Indication: HYPERTENSION
     Dosage: DF Q DAY PO
     Route: 048
  2. TIAZAC [Concomitant]
  3. NITROGLYCERIN [Concomitant]
  4. VITAMIN B-12 [Concomitant]

REACTIONS (3)
  - CHEST PAIN [None]
  - MALAISE [None]
  - PAIN IN EXTREMITY [None]
